FAERS Safety Report 19350697 (Version 2)
Quarter: 2021Q2

REPORT INFORMATION
  Report Type: Spontaneous
  Country: AT (occurrence: AT)
  Receive Date: 20210531
  Receipt Date: 20210618
  Transmission Date: 20210717
  Serious: No
  Sender: FDA-Public Use
  Company Number: AT-BAUSCH-BL-2021-017848

PATIENT
  Age: 59 Year
  Sex: Female

DRUGS (13)
  1. DEXAMETHASONE. [Suspect]
     Active Substance: DEXAMETHASONE
     Indication: DIFFUSE LARGE B-CELL LYMPHOMA
     Dosage: ONE CYCLE (RADOX THERAPY)
     Route: 065
     Dates: start: 202007, end: 202008
  2. RITUXIMAB. [Suspect]
     Active Substance: RITUXIMAB
     Indication: DIFFUSE LARGE B-CELL LYMPHOMA
     Dosage: ONE CYCLE (R?ICE THERAPY)
     Route: 065
     Dates: start: 202006, end: 202007
  3. OXALIPLATIN. [Suspect]
     Active Substance: OXALIPLATIN
     Indication: DIFFUSE LARGE B-CELL LYMPHOMA
     Dosage: ONE CYCLE (RADOX THERAPY)
     Route: 065
     Dates: start: 202007, end: 202008
  4. MYOCET [Suspect]
     Active Substance: DOXORUBICIN
     Indication: DIFFUSE LARGE B-CELL LYMPHOMA
     Dosage: 8 CYCLES ADMINISTERED IN TOTAL (R?COMP THERAPY)
     Route: 065
     Dates: start: 201908, end: 202002
  5. CARBOPLATIN. [Suspect]
     Active Substance: CARBOPLATIN
     Indication: DIFFUSE LARGE B-CELL LYMPHOMA
     Dosage: ONE CYCLE (R?ICE THERAPY)
     Route: 065
     Dates: start: 202006, end: 202007
  6. CYCLOPHOSPHAMIDE. [Suspect]
     Active Substance: CYCLOPHOSPHAMIDE
     Indication: DIFFUSE LARGE B-CELL LYMPHOMA
     Dosage: 8 CYCLES (R?COMP THERAPY)
     Route: 065
     Dates: start: 201908, end: 202002
  7. VINCRISTINE [Suspect]
     Active Substance: VINCRISTINE
     Indication: DIFFUSE LARGE B-CELL LYMPHOMA
     Dosage: 8 CYCLES ADMINISTERED IN TOTAL (R?COMP THERAPY)
     Route: 065
     Dates: start: 201908, end: 202002
  8. IFOSFAMIDE. [Suspect]
     Active Substance: IFOSFAMIDE
     Indication: DIFFUSE LARGE B-CELL LYMPHOMA
     Dosage: ONE CYCLE (R?ICE THERAPY)
     Route: 065
     Dates: start: 202006, end: 202007
  9. RITUXIMAB. [Suspect]
     Active Substance: RITUXIMAB
     Dosage: ONE CYCLE (RADOX THERAPY)
     Route: 065
     Dates: start: 202007, end: 202008
  10. ARA?C [Suspect]
     Active Substance: CYTARABINE
     Indication: DIFFUSE LARGE B-CELL LYMPHOMA
     Dosage: ONE CYCLE (RADOX THERAPY)
     Route: 065
     Dates: start: 202007, end: 202008
  11. ETOPOSIDE. [Suspect]
     Active Substance: ETOPOSIDE
     Indication: DIFFUSE LARGE B-CELL LYMPHOMA
     Dosage: ONE CYCLE (R?ICE THERAPY)
     Route: 065
     Dates: start: 202006, end: 202007
  12. RITUXIMAB. [Suspect]
     Active Substance: RITUXIMAB
     Dosage: 8 CYCLES ADMINISTERED IN TOTAL (R?COMP THERAPY)
     Route: 065
     Dates: start: 201908, end: 202002
  13. PREDNISONE. [Suspect]
     Active Substance: PREDNISONE
     Indication: DIFFUSE LARGE B-CELL LYMPHOMA
     Dosage: 8 CYCLES ADMINISTERED IN TOTAL (R?COMP THERAPY)
     Route: 065
     Dates: start: 201908, end: 202002

REACTIONS (1)
  - Therapy non-responder [Unknown]

NARRATIVE: CASE EVENT DATE: 202008
